FAERS Safety Report 24308833 (Version 3)
Quarter: 2024Q4

REPORT INFORMATION
  Report Type: Spontaneous
  Country: US (occurrence: US)
  Receive Date: 20240911
  Receipt Date: 20241210
  Transmission Date: 20250114
  Serious: Yes (Hospitalization)
  Sender: PFIZER
  Company Number: US-PFIZER INC-202400236027

PATIENT
  Age: 77 Year
  Sex: Female

DRUGS (2)
  1. TUKYSA [Suspect]
     Active Substance: TUCATINIB
     Indication: Metastatic neoplasm
     Dosage: 150 MG, TAKE TWO PILLS BY MOUTH TWICE A DAY/150MG; 2 TABLETS TWICE DAILY
     Route: 048
     Dates: end: 20240909
  2. CAPECITABINE [Concomitant]
     Active Substance: CAPECITABINE
     Dosage: 500 MG

REACTIONS (9)
  - Rib fracture [Unknown]
  - Off label use [Unknown]
  - Lip blister [Unknown]
  - Fatigue [Unknown]
  - Pain [Unknown]
  - Feeling abnormal [Unknown]
  - Hypersensitivity [Unknown]
  - Sneezing [Unknown]
  - Cough [Unknown]
